FAERS Safety Report 22650148 (Version 4)
Quarter: 2024Q3

REPORT INFORMATION
  Report Type: Report from Study
  Country: KR (occurrence: KR)
  Receive Date: 20230628
  Receipt Date: 20240708
  Transmission Date: 20241017
  Serious: Yes (Other)
  Sender: MYLAN
  Company Number: KR-MYLANLABS-2023M1064922

PATIENT
  Sex: Male

DRUGS (1)
  1. LYRICA CR [Suspect]
     Active Substance: PREGABALIN
     Indication: Hypoaesthesia
     Dosage: 165 MILLIGRAM, QD (165 MG/DAY)
     Route: 048
     Dates: start: 2015

REACTIONS (4)
  - Facial paralysis [Unknown]
  - Hyperlipidaemia [Unknown]
  - Hypertension [Unknown]
  - Off label use [Unknown]
